FAERS Safety Report 9846810 (Version 2)
Quarter: 2014Q1

REPORT INFORMATION
  Report Type: Spontaneous
  Country: SE (occurrence: SE)
  Receive Date: 20140127
  Receipt Date: 20140127
  Transmission Date: 20141002
  Serious: Yes (Hospitalization)
  Sender: FDA-Public Use
  Company Number: SE-B.I. PHARMACEUTICALS,INC./RIDGEFIELD-2013-BI-41715SW

PATIENT
  Age: 75 Year
  Sex: Male

DRUGS (7)
  1. PRADAXA [Suspect]
     Indication: CEREBROVASCULAR ACCIDENT PROPHYLAXIS
     Dosage: 300 MG
     Route: 048
     Dates: start: 20130922
  2. PRADAXA [Suspect]
     Indication: ATRIAL FIBRILLATION
  3. SELOKEN ZOC / METOPROLOLE [Concomitant]
     Dates: start: 1983
  4. DIOVAN COMP / VALSARTANE, HYDROCHLOROTIAZIDE [Concomitant]
     Dosage: 80/12.5
     Dates: start: 2006
  5. AMPLODIPINE [Concomitant]
     Dates: start: 2006
  6. DOXYFERM /DOXYCYCLINE [Concomitant]
     Dates: start: 20131023, end: 20131101
  7. AMOXICILLIN /AMOXICILLINE [Concomitant]
     Dates: start: 20131106, end: 20131115

REACTIONS (2)
  - Pneumonitis [Recovered/Resolved]
  - Cough [Unknown]
